FAERS Safety Report 4686341-1 (Version None)
Quarter: 2005Q2

REPORT INFORMATION
  Report Type: 
  Country: None (occurrence: None)
  Receive Date: 20050609
  Receipt Date: 20040916
  Transmission Date: 20051028
  Serious: Yes (Death)
  Sender: FDA-Public Use
  Company Number: GB-JNJFOC-20040800406

PATIENT
  Sex: Male

DRUGS (11)
  1. REMICADE [Suspect]
     Indication: RHEUMATOID ARTHRITIS
     Route: 042
  2. METHOTREXATE [Concomitant]
  3. FOLIC ACID [Concomitant]
  4. PREDNISOLONE [Concomitant]
  5. RAMIPRIL [Concomitant]
  6. PREVASTATIN [Concomitant]
  7. CLOPIDOGRAL [Concomitant]
  8. CELEBREX [Concomitant]
  9. DILTIAZEM [Concomitant]
  10. CALCICHEW [Concomitant]
  11. SALBUTAMOL [Concomitant]

REACTIONS (1)
  - MYOCARDIAL INFARCTION [None]
